FAERS Safety Report 6297283-2 (Version None)
Quarter: 2009Q3

REPORT INFORMATION
  Report Type: 
  Country: None (occurrence: None)
  Receive Date: 20090805
  Receipt Date: 20090723
  Transmission Date: 20100115
  Serious: Yes (Hospitalization)
  Sender: FDA-Public Use
  Company Number: BE-ELI_LILLY_AND_COMPANY-BE200906004270

PATIENT
  Sex: Male
  Weight: 102 kg

DRUGS (8)
  1. PEMETREXED [Suspect]
     Indication: NON-SMALL CELL LUNG CANCER
     Dosage: UNK, DAY 1 EVERY 21 DAYS
     Dates: start: 20090616, end: 20090618
  2. PEMETREXED [Suspect]
     Dosage: 500 MG/M2, DAY 1 EVERY 21 DAYS
     Route: 042
     Dates: start: 20090324, end: 20090525
  3. CISPLATIN [Suspect]
     Indication: NON-SMALL CELL LUNG CANCER
     Dosage: 75 MG/M2, DAY 1 EVERY 21 DAYS
     Route: 042
     Dates: start: 20090324, end: 20090525
  4. FOLIC ACID [Concomitant]
     Indication: PROPHYLAXIS
     Dates: start: 20090319
  5. VITAMIN B-12 [Concomitant]
     Indication: PROPHYLAXIS
     Dates: start: 20090525
  6. MEDROL [Concomitant]
     Indication: PROPHYLAXIS
  7. DURAGESIC-100 [Concomitant]
     Indication: PAIN
  8. NEXIUM [Concomitant]
     Indication: ABDOMINAL PAIN UPPER

REACTIONS (2)
  - HEPATOMEGALY [None]
  - OEDEMA PERIPHERAL [None]
